FAERS Safety Report 16219129 (Version 3)
Quarter: 2019Q4

REPORT INFORMATION
  Report Type: Spontaneous
  Country: US (occurrence: US)
  Receive Date: 20190419
  Receipt Date: 20191104
  Transmission Date: 20200122
  Serious: Yes (Other)
  Sender: FDA-Public Use
  Company Number: US-ASTRAZENECA-2019SE10285

PATIENT
  Age: 33 Year
  Sex: Female
  Weight: 65.8 kg

DRUGS (55)
  1. NEXIUM 24HR [Suspect]
     Active Substance: ESOMEPRAZOLE MAGNESIUM
     Indication: GASTROOESOPHAGEAL REFLUX DISEASE
     Route: 048
  2. PROTONIX [Suspect]
     Active Substance: PANTOPRAZOLE SODIUM
     Indication: GASTRIC ULCER
     Route: 065
  3. FUROSEMIDE. [Concomitant]
     Active Substance: FUROSEMIDE
  4. NIFEDIPINE. [Concomitant]
     Active Substance: NIFEDIPINE
  5. SULFASALAZINE. [Concomitant]
     Active Substance: SULFASALAZINE
  6. PREDNISONE. [Concomitant]
     Active Substance: PREDNISONE
  7. FOLIC ACID. [Concomitant]
     Active Substance: FOLIC ACID
  8. PRINIVIL [Concomitant]
     Active Substance: LISINOPRIL
  9. OXYCODONE [Concomitant]
     Active Substance: OXYCODONE
  10. VITAMIN C [Concomitant]
     Active Substance: ASCORBIC ACID
  11. NIFEDIPINE. [Concomitant]
     Active Substance: NIFEDIPINE
  12. CETIRIZINE [Concomitant]
     Active Substance: CETIRIZINE HYDROCHLORIDE
  13. LEFLUNOMIDE. [Concomitant]
     Active Substance: LEFLUNOMIDE
  14. DOXYCYCLINE. [Concomitant]
     Active Substance: DOXYCYCLINE
  15. HYDROCODON [Concomitant]
     Active Substance: HYDROCODONE
  16. TRAMADOL. [Concomitant]
     Active Substance: TRAMADOL
  17. NEXIUM 24HR [Suspect]
     Active Substance: ESOMEPRAZOLE MAGNESIUM
     Indication: GASTRIC ULCER
     Route: 048
  18. PRILOSEC OTC [Suspect]
     Active Substance: OMEPRAZOLE MAGNESIUM
     Indication: GASTRIC ULCER
     Route: 048
  19. PROTONIX [Suspect]
     Active Substance: PANTOPRAZOLE SODIUM
     Indication: GASTROOESOPHAGEAL REFLUX DISEASE
     Route: 065
  20. FOLIC ACID. [Concomitant]
     Active Substance: FOLIC ACID
  21. TRAMADOL. [Concomitant]
     Active Substance: TRAMADOL
  22. NAPROXEN. [Concomitant]
     Active Substance: NAPROXEN
  23. ASPIRIN. [Concomitant]
     Active Substance: ASPIRIN
  24. SULFASALAZINE. [Concomitant]
     Active Substance: SULFASALAZINE
  25. MUCINEX [Concomitant]
     Active Substance: GUAIFENESIN
  26. TYLENOL [Concomitant]
     Active Substance: ACETAMINOPHEN
  27. CLOBETASOL [Concomitant]
     Active Substance: CLOBETASOL
  28. ATORVASTATIN [Concomitant]
     Active Substance: ATORVASTATIN
  29. NOVOLOG [Concomitant]
     Active Substance: INSULIN ASPART
  30. FLUOCINONIDE. [Concomitant]
     Active Substance: FLUOCINONIDE
  31. ZOFRAN [Concomitant]
     Active Substance: ONDANSETRON HYDROCHLORIDE
  32. COMPAZINE [Concomitant]
     Active Substance: PROCHLORPERAZINE MALEATE
  33. AZITHROMYCIN ANHYDROUS. [Concomitant]
     Active Substance: AZITHROMYCIN ANHYDROUS
  34. AMOXICILLIN. [Concomitant]
     Active Substance: AMOXICILLIN
  35. FLUCONAZOLE. [Concomitant]
     Active Substance: FLUCONAZOLE
  36. WARFARIN [Concomitant]
     Active Substance: WARFARIN
  37. LORATADINE. [Concomitant]
     Active Substance: LORATADINE
  38. CLOBETASOL [Concomitant]
     Active Substance: CLOBETASOL
  39. BUSPIRONE [Concomitant]
     Active Substance: BUSPIRONE HYDROCHLORIDE
  40. FISH OIL [Concomitant]
     Active Substance: FISH OIL
  41. PRILOSEC OTC [Suspect]
     Active Substance: OMEPRAZOLE MAGNESIUM
     Indication: GASTROOESOPHAGEAL REFLUX DISEASE
     Route: 048
  42. VALGANCICLOVIR. [Concomitant]
     Active Substance: VALGANCICLOVIR
  43. VITAMIN D3 [Concomitant]
     Active Substance: CHOLECALCIFEROL
  44. HUMIRA [Concomitant]
     Active Substance: ADALIMUMAB
  45. METHOTREXATE. [Concomitant]
     Active Substance: METHOTREXATE
  46. GLUCAGON. [Concomitant]
     Active Substance: GLUCAGON
  47. LEFLUNOMIDE. [Concomitant]
     Active Substance: LEFLUNOMIDE
  48. CYCLOBENZAPRINE. [Concomitant]
     Active Substance: CYCLOBENZAPRINE
  49. LISINOPRIL. [Concomitant]
     Active Substance: LISINOPRIL
  50. MELOXICAM. [Concomitant]
     Active Substance: MELOXICAM
  51. METHOTREXATE. [Concomitant]
     Active Substance: METHOTREXATE
  52. NAPROXEN. [Concomitant]
     Active Substance: NAPROXEN
  53. PROMETHAZINE [Concomitant]
     Active Substance: PROMETHAZINE HYDROCHLORIDE
  54. IBUPROFEN. [Concomitant]
     Active Substance: IBUPROFEN
  55. DOVONEX [Concomitant]
     Active Substance: CALCIPOTRIENE

REACTIONS (7)
  - Renal failure [Unknown]
  - Renal injury [Unknown]
  - Rebound acid hypersecretion [Unknown]
  - End stage renal disease [Not Recovered/Not Resolved]
  - Anaemia of chronic disease [Unknown]
  - Chronic kidney disease [Unknown]
  - Acute kidney injury [Not Recovered/Not Resolved]

NARRATIVE: CASE EVENT DATE: 20130507
